FAERS Safety Report 8145794-7 (Version None)
Quarter: 2012Q1

REPORT INFORMATION
  Report Type: 
  Country: None (occurrence: None)
  Receive Date: 20120217
  Receipt Date: 20120213
  Transmission Date: 20120608
  Serious: Yes (Hospitalization, Other)
  Sender: FDA-Public Use
  Company Number: CA-JNJFOC-20120101959

PATIENT
  Age: 62 Year
  Sex: Female

DRUGS (7)
  1. VENTOLIN [Concomitant]
  2. FLOMAX [Concomitant]
  3. DILTIAZEM CD [Concomitant]
  4. XARELTO [Suspect]
     Indication: THROMBOSIS PROPHYLAXIS
     Route: 048
     Dates: start: 20110809, end: 20110817
  5. HYDROMORPHONE HCL [Concomitant]
     Indication: PROCEDURAL PAIN
  6. ATACAND HCT [Concomitant]
  7. SYNTHROID [Concomitant]

REACTIONS (4)
  - TRANSAMINASES INCREASED [None]
  - BLOOD BILIRUBIN INCREASED [None]
  - ABDOMINAL PAIN UPPER [None]
  - CHEST PAIN [None]
